FAERS Safety Report 8458373-9 (Version None)
Quarter: 2012Q2

REPORT INFORMATION
  Report Type: 
  Country: None (occurrence: None)
  Receive Date: 20120615
  Receipt Date: 20120604
  Transmission Date: 20120825
  Serious: Yes (Life-Threatening, Hospitalization)
  Sender: FDA-Public Use
  Company Number: TCI2012A02194

PATIENT
  Age: 42 Year
  Sex: Male

DRUGS (12)
  1. PREDNISOLONE SODIUM SUCCINATE INJ [Suspect]
     Dosage: 500 MG (500 MG,1 D) INJECTION ; 500 MG (500 MG,1 D) INJECTION ; 500 MG (500 MG,1 D) INJECTION
     Dates: start: 20120308
  2. PREDNISOLONE SODIUM SUCCINATE INJ [Suspect]
     Dosage: 500 MG (500 MG,1 D) INJECTION ; 500 MG (500 MG,1 D) INJECTION ; 500 MG (500 MG,1 D) INJECTION
  3. PREDNISOLONE SODIUM SUCCINATE INJ [Suspect]
     Dosage: 500 MG (500 MG,1 D) INJECTION ; 500 MG (500 MG,1 D) INJECTION ; 500 MG (500 MG,1 D) INJECTION
  4. ONELFA (ALFACALCIDOL) [Suspect]
     Dosage: 0.5 MCG (0.5 MCG,1 IN 1 D) PER ORAL
     Route: 048
     Dates: start: 20120308, end: 20120418
  5. PREDNISOLONE [Suspect]
     Dosage: 20 MG (20 MG,1 IN 1 D) PER ORAL ; 17.5 (17.5 MG,1 IN 1 D) PER ORAL ; 15 MG (15 MG,1 IN 1 D) PER ORAL
     Route: 048
  6. PREDNISOLONE [Suspect]
     Dosage: 20 MG (20 MG,1 IN 1 D) PER ORAL ; 17.5 (17.5 MG,1 IN 1 D) PER ORAL ; 15 MG (15 MG,1 IN 1 D) PER ORAL
     Route: 048
     Dates: end: 20120418
  7. FEBURIC ((FEBUXOSTAT) [Suspect]
     Dosage: 10 MG (10 MG,1 IN 1 D) PER ORAL
     Route: 048
     Dates: start: 20120126, end: 20120418
  8. SULFAMETHOXAZOLE AND TRIMETHOPRIM [Suspect]
     Dosage: 2 TAB. (1 TAB.,2 IN 1 D) PER ORAL
     Route: 048
     Dates: start: 20120308, end: 20120418
  9. ATELEC (CILNIDIPINE) [Suspect]
     Dosage: 10 MG (5 MG,2 IN 1 D) PER ORAL
     Route: 048
     Dates: end: 20120418
  10. LIVALO [Suspect]
     Dosage: 2 MG (2 MG,1 IN 1 D) PER ORAL
     Route: 048
     Dates: end: 20120418
  11. LANSOPRAZOLE [Suspect]
     Dosage: 30 MG (30 MG,1 IN 1 D) PER ORAL
     Route: 048
     Dates: start: 20120308, end: 20120418
  12. CANDESARTAN CILEXETIL [Suspect]
     Dosage: 4 MG (4 MG,1 IN 1 D) PER ORAL
     Route: 048
     Dates: end: 20120418

REACTIONS (5)
  - BLOOD PRESSURE DECREASED [None]
  - ABDOMINAL PAIN UPPER [None]
  - IGA NEPHROPATHY [None]
  - SEPTIC SHOCK [None]
  - AGRANULOCYTOSIS [None]
